FAERS Safety Report 10752019 (Version 1)
Quarter: 2015Q1

REPORT INFORMATION
  Report Type: Spontaneous
  Country: IN (occurrence: None)
  Receive Date: 20150128
  Receipt Date: 20150128
  Transmission Date: 20150721
  Serious: Yes (Other)
  Sender: FDA-Public Use
  Company Number: NSR_01777_2015

PATIENT
  Age: 52 Year
  Sex: Female

DRUGS (5)
  1. LEVOTHYROXINE (LEVOTHYROXINE) [Suspect]
     Active Substance: LEVOTHYROXINE
     Indication: PRODUCT USED FOR UNKNOWN INDICATION
     Route: 048
  2. METFORMIN [Suspect]
     Active Substance: METFORMIN HYDROCHLORIDE
     Indication: PRODUCT USED FOR UNKNOWN INDICATION
     Route: 048
  3. CALCIUM (CALCIUM) [Suspect]
     Active Substance: CALCIUM
     Indication: PRODUCT USED FOR UNKNOWN INDICATION
     Route: 048
  4. ATENOLOL (ATENOLOL) [Suspect]
     Active Substance: ATENOLOL
     Indication: DIASTOLIC HYPERTENSION
     Route: 048
  5. ATENOLOL (ATENOLOL) [Suspect]
     Active Substance: ATENOLOL
     Indication: SYSTOLIC HYPERTENSION
     Route: 048

REACTIONS (3)
  - Drug interaction [None]
  - Jaundice [None]
  - Hepatotoxicity [None]
